FAERS Safety Report 9008406 (Version 2)
Quarter: 2013Q2

REPORT INFORMATION
  Report Type: Spontaneous
  Country: US (occurrence: None)
  Receive Date: 20120518
  Receipt Date: 20120820
  Transmission Date: 20140414
  Serious: No
  Sender: FDA-Public Use
  Company Number: 1000029878

PATIENT
  Age: 61 Year
  Sex: Male

DRUGS (3)
  1. VIIBRYD [Suspect]
     Indication: DEPRESSION
     Dosage: (10 MG, 1 IN 1 D)
     Route: 048
     Dates: start: 20120416, end: 20120422
  2. CRESTOR (ROSUVASTATIN CALCIUM)(ROSUVASTATIN CALCIUM) [Concomitant]
  3. CARVEDILOL (CARVEDILOL) (CARVEDILOL) [Concomitant]

REACTIONS (2)
  - Somnolence [None]
  - Insomnia [None]
